FAERS Safety Report 4576742-4 (Version None)
Quarter: 2005Q1

REPORT INFORMATION
  Report Type: 
  Country: None (occurrence: None)
  Receive Date: 20050207
  Receipt Date: 20050120
  Transmission Date: 20050727
  Serious: Yes (Hospitalization)
  Sender: FDA-Public Use
  Company Number: ACO_0122_2005

PATIENT
  Age: 10 Year
  Sex: Male

DRUGS (5)
  1. ZANAFLEX [Suspect]
     Indication: MUSCLE SPASTICITY
     Dosage: DF
  2. LISINOPRIL [Suspect]
     Indication: HYPERTENSION
     Dosage: DF PO
     Route: 048
  3. VALPROIC ACID [Concomitant]
  4. VALIUM [Concomitant]
  5. CLONAZEPAM [Concomitant]

REACTIONS (6)
  - DEPRESSED LEVEL OF CONSCIOUSNESS [None]
  - HEART RATE INCREASED [None]
  - HYPOTENSION [None]
  - MUSCULOSKELETAL STIFFNESS [None]
  - PALLOR [None]
  - SOMNOLENCE [None]
